FAERS Safety Report 24937297 (Version 1)
Quarter: 2025Q1

REPORT INFORMATION
  Report Type: Spontaneous
  Country: US (occurrence: US)
  Receive Date: 20250206
  Receipt Date: 20250206
  Transmission Date: 20250409
  Serious: No
  Sender: ELI LILLY AND COMPANY
  Company Number: US-ELI_LILLY_AND_COMPANY-US202501008345

PATIENT
  Age: 82 Year
  Sex: Male

DRUGS (2)
  1. EMGALITY [Suspect]
     Active Substance: GALCANEZUMAB-GNLM
     Indication: Product used for unknown indication
     Route: 058
     Dates: start: 20241212
  2. EMGALITY [Suspect]
     Active Substance: GALCANEZUMAB-GNLM
     Route: 058
     Dates: start: 20250111

REACTIONS (2)
  - Eczema [Not Recovered/Not Resolved]
  - Dermatitis atopic [Not Recovered/Not Resolved]

NARRATIVE: CASE EVENT DATE: 20241201
